FAERS Safety Report 24229656 (Version 1)
Quarter: 2024Q3

REPORT INFORMATION
  Report Type: Spontaneous
  Country: US (occurrence: None)
  Receive Date: 20240819
  Receipt Date: 20240819
  Transmission Date: 20241017
  Serious: No
  Sender: Public
  Company Number: None

PATIENT
  Age: 50 Year
  Sex: Female
  Weight: 110.22 kg

DRUGS (2)
  1. RINVOQ [Suspect]
     Active Substance: UPADACITINIB
     Indication: Spinal osteoarthritis
     Dosage: TAKE 1 TABLET BY MOUTH DAILY AS DIRECTED?
     Route: 048
     Dates: start: 202408
  2. IBANDRONATE SODIUM [Suspect]
     Active Substance: IBANDRONATE SODIUM
     Indication: Spinal osteoarthritis

REACTIONS (3)
  - Upper respiratory tract infection [None]
  - Exposure to SARS-CoV-2 [None]
  - Product use issue [None]
